FAERS Safety Report 5662852-7 (Version None)
Quarter: 2008Q1

REPORT INFORMATION
  Report Type: 
  Country: None (occurrence: None)
  Receive Date: 20080307
  Receipt Date: 20080220
  Transmission Date: 20080703
  Serious: Yes (Other)
  Sender: FDA-Public Use
  Company Number: 2008PV034319

PATIENT
  Age: 66 Year
  Sex: Male

DRUGS (4)
  1. SYMLIN [Suspect]
     Indication: TYPE 2 DIABETES MELLITUS
     Dosage: 60 MCG; TID; SC, 60 MCG; TID; SC
     Route: 058
     Dates: start: 20060101, end: 20080101
  2. SYMLIN [Suspect]
     Indication: TYPE 2 DIABETES MELLITUS
     Dosage: 60 MCG; TID; SC, 60 MCG; TID; SC
     Route: 058
     Dates: start: 20080101
  3. SYMLINPEN (PRAMLINTIDE ACETATE) PEN-INJECTOR (1.0 MG/ML) [Suspect]
     Indication: TYPE 2 DIABETES MELLITUS
     Dosage: 60 MCG; TID; SC
     Route: 058
     Dates: start: 20080101, end: 20080101
  4. INSULIN [Concomitant]

REACTIONS (4)
  - CONTUSION [None]
  - EXCORIATION [None]
  - NAUSEA [None]
  - SYNCOPE [None]
